FAERS Safety Report 10624834 (Version 3)
Quarter: 2015Q1

REPORT INFORMATION
  Report Type: Report from Study
  Country: JP (occurrence: JP)
  Receive Date: 20141204
  Receipt Date: 20150102
  Transmission Date: 20150720
  Serious: Yes (Hospitalization, Other)
  Sender: FDA-Public Use
  Company Number: JP-BRISTOL-MYERS SQUIBB COMPANY-21539952

PATIENT
  Age: 72 Year
  Sex: Female

DRUGS (2)
  1. ABATACEPT [Suspect]
     Active Substance: ABATACEPT
     Indication: RHEUMATOID ARTHRITIS
     Dosage: 500 MG, QD
     Route: 042
     Dates: start: 20141027, end: 20141027
  2. METHOTREXATE [Suspect]
     Active Substance: METHOTREXATE
     Indication: RHEUMATOID ARTHRITIS
     Dosage: 10 MG, QWK
     Route: 048
     Dates: start: 20130801

REACTIONS (2)
  - Punctate keratitis [Recovering/Resolving]
  - Anaphylactic shock [Recovering/Resolving]

NARRATIVE: CASE EVENT DATE: 20141027
